FAERS Safety Report 8280234-9 (Version None)
Quarter: 2012Q2

REPORT INFORMATION
  Report Type: 
  Country: None (occurrence: None)
  Receive Date: 20120412
  Receipt Date: 20111201
  Transmission Date: 20120825
  Serious: No
  Sender: FDA-Public Use
  Company Number: US-ASTRAZENECA-2010SE07151

PATIENT
  Age: 54 Year
  Sex: Male

DRUGS (2)
  1. MAGNESIUM HYDROXIDE TAB [Concomitant]
  2. NEXIUM [Suspect]
     Route: 048

REACTIONS (7)
  - SCHIZOPHRENIA [None]
  - APHAGIA [None]
  - DRUG DOSE OMISSION [None]
  - PAIN [None]
  - MALAISE [None]
  - ABDOMINAL PAIN UPPER [None]
  - DYSPEPSIA [None]
